FAERS Safety Report 8792845 (Version 1)
Quarter: 2012Q4

REPORT INFORMATION
  Report Type: 
  Country: US (occurrence: US)
  Receive Date: 20120918
  Receipt Date: 20120918
  Transmission Date: 20130627
  Serious: Yes (Life-Threatening)
  Sender: FDA-Public Use
  Company Number: US-CELGENEUS-163-21880-12091644

PATIENT
  Age: 79 Year
  Sex: Male

DRUGS (6)
  1. REVLIMID [Suspect]
     Indication: MULTIPLE MYELOMA
     Dosage: 10 Milligram
     Route: 048
     Dates: start: 20100128
  2. REVLIMID [Suspect]
     Dosage: 15 Milligram
     Route: 048
     Dates: start: 201003
  3. REVLIMID [Suspect]
     Dosage: 5 Milligram
     Route: 048
     Dates: start: 201004
  4. REVLIMID [Suspect]
     Dosage: 15 Milligram
     Route: 048
     Dates: start: 201009
  5. REVLIMID [Suspect]
     Dosage: 5 Milligram
     Route: 048
     Dates: start: 201101
  6. REVLIMID [Suspect]
     Dosage: 5 Milligram
     Route: 048
     Dates: start: 201109

REACTIONS (1)
  - Plasma cell myeloma [Not Recovered/Not Resolved]
